FAERS Safety Report 9009005 (Version 3)
Quarter: 2013Q3

REPORT INFORMATION
  Report Type: Spontaneous
  Country: US (occurrence: US)
  Receive Date: 20130111
  Receipt Date: 20130909
  Transmission Date: 20140515
  Serious: Yes (Other)
  Sender: FDA-Public Use
  Company Number: US-PFIZER INC-2013012611

PATIENT
  Age: 61 Year
  Sex: Female
  Weight: 69.84 kg

DRUGS (3)
  1. LIPITOR [Suspect]
     Indication: BLOOD CHOLESTEROL INCREASED
     Dosage: UNK, 1X/DAY
     Dates: start: 2007
  2. LIPITOR [Suspect]
     Indication: HYPERTENSION
  3. PRILOSEC [Concomitant]
     Indication: GASTRIC DISORDER
     Dosage: 20 MG, DAILY

REACTIONS (5)
  - Aneurysm [Unknown]
  - Transient ischaemic attack [Unknown]
  - Arrhythmia [Unknown]
  - Intentional drug misuse [Unknown]
  - Off label use [Unknown]
